FAERS Safety Report 24568119 (Version 2)
Quarter: 2024Q4

REPORT INFORMATION
  Report Type: Report from Study
  Country: IL (occurrence: IL)
  Receive Date: 20241031
  Receipt Date: 20241105
  Transmission Date: 20250115
  Serious: Yes (Hospitalization)
  Sender: ABBVIE
  Company Number: IL-ABBVIE-5983961

PATIENT
  Age: 73 Year
  Sex: Female

DRUGS (2)
  1. FOSCARBIDOPA\FOSLEVODOPA [Suspect]
     Active Substance: FOSCARBIDOPA\FOSLEVODOPA
     Indication: Parkinson^s disease
     Dosage: LOADING D-1.2ML,HIGH INFUSION RATE 0.40,LOW INFUSION RATE 0.3,BASE INFUSION RATE-0.38,ED-0.2ML?LA...
     Route: 058
     Dates: start: 20241029
  2. FOSCARBIDOPA\FOSLEVODOPA [Suspect]
     Active Substance: FOSCARBIDOPA\FOSLEVODOPA
     Dosage: LOADING D-1.2ML,HIGH INFUSION RATE 0.42,LOW INFUSION RATE 0.3,BASE INFUSION RATE-0.4 ED-0.2ML, ?L...
     Route: 058
     Dates: start: 20240916

REACTIONS (3)
  - Abdominal abscess [Recovering/Resolving]
  - Hallucination [Unknown]
  - Skin reaction [Unknown]

NARRATIVE: CASE EVENT DATE: 20240101
